FAERS Safety Report 5752575-8 (Version None)
Quarter: 2008Q2

REPORT INFORMATION
  Report Type: 
  Country: None (occurrence: None)
  Receive Date: 20080529
  Receipt Date: 20080523
  Transmission Date: 20081010
  Serious: Yes (Hospitalization)
  Sender: FDA-Public Use
  Company Number: PHNU2008DE01271

PATIENT
  Sex: Female
  Weight: 55 kg

DRUGS (3)
  1. SANDIMMUNE [Suspect]
     Indication: RENAL TRANSPLANT
     Dosage: 250MG/DAY
     Route: 048
     Dates: start: 19900101, end: 20070901
  2. CICLORAL HEXAL (NGX) [Suspect]
     Indication: RENAL TRANSPLANT
     Dosage: 250MG/DAY
     Route: 048
     Dates: start: 19900101, end: 20070901
  3. PROGRAF [Suspect]
     Indication: RENAL TRANSPLANT
     Dosage: 2MG/DAY
     Route: 048
     Dates: start: 20070901, end: 20071001

REACTIONS (14)
  - AORTIC VALVE INCOMPETENCE [None]
  - BLISTER [None]
  - BLOOD CREATININE INCREASED [None]
  - DERMATITIS ATOPIC [None]
  - ECZEMA [None]
  - ERYTHEMA [None]
  - INTERTRIGO [None]
  - NEURODERMATITIS [None]
  - PRURITUS [None]
  - SCAB [None]
  - SKIN EXFOLIATION [None]
  - SKIN LESION [None]
  - STRESS [None]
  - URINARY TRACT INFECTION [None]
